FAERS Safety Report 11139369 (Version 1)
Quarter: 2015Q2

REPORT INFORMATION
  Report Type: Spontaneous
  Country: US (occurrence: US)
  Receive Date: 20150527
  Receipt Date: 20150527
  Transmission Date: 20150821
  Serious: No
  Sender: FDA-Public Use
  Company Number: US-MALLINCKRODT-T201404104

PATIENT
  Age: 60 Year
  Sex: Male
  Weight: 68 kg

DRUGS (8)
  1. PREDNISONE. [Concomitant]
     Active Substance: PREDNISONE
     Dosage: 20 MG, QD
  2. H.P. ACTHAR [Suspect]
     Active Substance: CORTICOTROPIN
     Dosage: 240 U, BIWEEKLY
     Route: 058
     Dates: start: 20140926, end: 20141104
  3. H.P. ACTHAR [Suspect]
     Active Substance: CORTICOTROPIN
     Indication: PROTEINURIA
     Dosage: 120 U, BIWEEKLY
     Route: 058
     Dates: start: 20140724, end: 20140925
  4. LISINOPRIL. [Concomitant]
     Active Substance: LISINOPRIL
  5. HYDROCODONE [Concomitant]
     Active Substance: HYDROCODONE
     Dosage: UNK, PRN
  6. H.P. ACTHAR [Suspect]
     Active Substance: CORTICOTROPIN
     Dosage: 80 U, BIWEEKLY
     Route: 058
     Dates: start: 20141105
  7. MYCOPHENOLATE [Concomitant]
     Active Substance: MYCOPHENOLIC ACID
  8. TRAMADOL [Concomitant]
     Active Substance: TRAMADOL
     Dosage: UNK, PRN

REACTIONS (12)
  - Injection site bruising [Not Recovered/Not Resolved]
  - Pain in extremity [Not Recovered/Not Resolved]
  - Medication error [Recovered/Resolved]
  - Vision blurred [Unknown]
  - Injection site pruritus [Recovered/Resolved]
  - Back pain [Not Recovered/Not Resolved]
  - Increased tendency to bruise [Unknown]
  - Overdose [Recovered/Resolved]
  - Injection site mass [Recovered/Resolved]
  - Gait disturbance [Recovered/Resolved]
  - Injection site reaction [Not Recovered/Not Resolved]
  - Injection site erythema [Recovered/Resolved]

NARRATIVE: CASE EVENT DATE: 2014
